APPROVED DRUG PRODUCT: AMLODIPINE BESYLATE, VALSARTAN AND HYDROCHLOROTHIAZIDE
Active Ingredient: AMLODIPINE BESYLATE; HYDROCHLOROTHIAZIDE; VALSARTAN
Strength: EQ 10MG BASE;12.5MG;160MG
Dosage Form/Route: TABLET;ORAL
Application: A201087 | Product #003 | TE Code: AB
Applicant: STRIDES PHARMA INTERNATIONAL AG
Approved: Jun 1, 2015 | RLD: No | RS: No | Type: RX